FAERS Safety Report 14022207 (Version 1)
Quarter: 2017Q3

REPORT INFORMATION
  Report Type: Spontaneous
  Country: TW (occurrence: TW)
  Receive Date: 20170928
  Receipt Date: 20170928
  Transmission Date: 20171128
  Serious: Yes (Other)
  Sender: FDA-Public Use
  Company Number: TW-009507513-1709TWN012214

PATIENT
  Age: 80 Year

DRUGS (1)
  1. ZEPATIER [Suspect]
     Active Substance: ELBASVIR\GRAZOPREVIR
     Indication: CHRONIC HEPATITIS C
     Dosage: UNK
     Route: 048
     Dates: start: 2017, end: 2017

REACTIONS (2)
  - Dementia [Unknown]
  - Delirium [Unknown]

NARRATIVE: CASE EVENT DATE: 2017
